FAERS Safety Report 9604428 (Version 1)
Quarter: 2013Q4

REPORT INFORMATION
  Report Type: Spontaneous
  Country: US (occurrence: US)
  Receive Date: 20131008
  Receipt Date: 20131008
  Transmission Date: 20140711
  Serious: Yes (Other)
  Sender: FDA-Public Use
  Company Number: PHHY2013US111420

PATIENT
  Age: 53 Year
  Sex: Female

DRUGS (13)
  1. LOPRESSOR [Suspect]
     Indication: HYPERTENSION
     Dosage: UNK
     Dates: end: 2013
  2. LOPRESSOR [Suspect]
     Indication: MIGRAINE
  3. LOPRESSOR [Suspect]
     Indication: OFF LABEL USE
  4. METOPROLOL [Suspect]
     Indication: HYPERTENSION
     Dosage: UNK UKN, UNK
     Dates: start: 2013, end: 2013
  5. METOPROLOL [Suspect]
     Indication: MIGRAINE
  6. METOPROLOL [Suspect]
     Indication: OFF LABEL USE
  7. EXCEDRIN EXTRA STRENGTH [Suspect]
     Indication: HEADACHE
     Dosage: (IN THE MORNING, AS NEEDED, BEFORE THE RECALL) DF
     Dates: start: 2013, end: 2013
  8. EXCEDRIN EXTRA STRENGTH [Suspect]
     Indication: MIGRAINE
     Dosage: (AFTER THE RECALL) DF
  9. EXCEDRIN EXTRA STRENGTH [Suspect]
     Indication: OFF LABEL USE
  10. BYSTOLIC [Suspect]
     Indication: HYPERTENSION
  11. BYSTOLIC [Suspect]
     Indication: MIGRAINE
  12. BYSTOLIC [Suspect]
     Indication: OFF LABEL USE
  13. ASPIRIN [Concomitant]
     Dosage: UNK UKN, UNK

REACTIONS (8)
  - Epistaxis [Unknown]
  - Product quality issue [Unknown]
  - Dyspnoea [Unknown]
  - Alopecia [Unknown]
  - Chest pain [Unknown]
  - Migraine [Unknown]
  - Hypertension [Not Recovered/Not Resolved]
  - Drug ineffective [Unknown]
